FAERS Safety Report 8928651 (Version 1)
Quarter: 2012Q4

REPORT INFORMATION
  Report Type: Spontaneous
  Country: US (occurrence: None)
  Receive Date: 20121126
  Receipt Date: 20121126
  Transmission Date: 20130627
  Serious: Yes (Hospitalization, Other)
  Sender: FDA-Public Use
  Company Number: None

PATIENT
  Age: 54 Year
  Sex: Male
  Weight: 150.14 kg

DRUGS (1)
  1. MELOXICAM 15MG [Suspect]
     Indication: OSTEOARTHRITIS KNEE
     Dosage: 15MG DAILY WITH LUNCH po
     Route: 048

REACTIONS (4)
  - Cerebrovascular accident [None]
  - VIIth nerve paralysis [None]
  - Memory impairment [None]
  - Confusional state [None]
